FAERS Safety Report 7704562-8 (Version None)
Quarter: 2011Q3

REPORT INFORMATION
  Report Type: 
  Country: None (occurrence: None)
  Receive Date: 20110823
  Receipt Date: 20110811
  Transmission Date: 20111222
  Serious: Yes (Death, Hospitalization)
  Sender: FDA-Public Use
  Company Number: US-GLAXOSMITHKLINE-A0912740A

PATIENT
  Sex: Male

DRUGS (2)
  1. AVANDAMET [Suspect]
     Indication: DIABETES MELLITUS
     Route: 048
     Dates: start: 20061001, end: 20081101
  2. AVANDIA [Suspect]
     Indication: DIABETES MELLITUS
     Route: 048
     Dates: start: 19990801, end: 20061001

REACTIONS (5)
  - CARDIAC FAILURE ACUTE [None]
  - CARDIAC DISORDER [None]
  - HEART INJURY [None]
  - CARDIAC FAILURE [None]
  - CORONARY ARTERY BYPASS [None]
